FAERS Safety Report 21224094 (Version 1)
Quarter: 2022Q3

REPORT INFORMATION
  Report Type: Spontaneous
  Country: US (occurrence: US)
  Receive Date: 20220817
  Receipt Date: 20220817
  Transmission Date: 20221026
  Serious: No
  Sender: FDA-Public Use
  Company Number: US-SA-2022MK000124

PATIENT
  Age: 61 Year
  Sex: Female
  Weight: 67.646 kg

DRUGS (9)
  1. AFREZZA [Suspect]
     Active Substance: INSULIN HUMAN
     Indication: Type 2 diabetes mellitus
     Dosage: 4-12 UNITS BEFORE EACH MEAL AS NEEDED (4 UNITS IF BLOOD GLUCOSE LEVEL (BGL) IS }230, 8 UNIT IF BGL I
     Dates: start: 20220506
  2. AFREZZA [Suspect]
     Active Substance: INSULIN HUMAN
     Dosage: 4-12 UNITS BEFORE EACH MEAL AS NEEDED (4 UNITS IF BLOOD GLUCOSE LEVEL (BGL) IS }230, 8 UNIT IF BGL I
     Dates: start: 20220506
  3. AFREZZA [Suspect]
     Active Substance: INSULIN HUMAN
     Dosage: 4-12 UNITS BEFORE EACH MEAL AS NEEDED (4 UNITS IF BLOOD GLUCOSE LEVEL (BGL) IS }230, 8 UNIT IF BGL I
     Dates: start: 20220506
  4. TRULICITY [Concomitant]
     Active Substance: DULAGLUTIDE
     Indication: Type 2 diabetes mellitus
     Route: 058
  5. SYNJARDY [Concomitant]
     Active Substance: EMPAGLIFLOZIN\METFORMIN HYDROCHLORIDE
     Indication: Type 2 diabetes mellitus
     Route: 048
  6. LANTUS [Concomitant]
     Active Substance: INSULIN GLARGINE
     Indication: Type 2 diabetes mellitus
     Route: 058
  7. GEMFIBROZIL [Concomitant]
     Active Substance: GEMFIBROZIL
     Indication: Blood cholesterol
  8. LOSARTAN [Concomitant]
     Active Substance: LOSARTAN
     Indication: Hypertension
  9. GABAPENTIN [Concomitant]
     Active Substance: GABAPENTIN
     Indication: Arthritis

REACTIONS (1)
  - Cough [Recovered/Resolved]

NARRATIVE: CASE EVENT DATE: 20220506
